FAERS Safety Report 4948143-8 (Version None)
Quarter: 2006Q1

REPORT INFORMATION
  Report Type: 
  Country: None (occurrence: None)
  Receive Date: 20060320
  Receipt Date: 20060312
  Transmission Date: 20060701
  Serious: Yes (Other)
  Sender: FDA-Public Use
  Company Number: PHBS2006IL03743

PATIENT
  Age: 52 Year
  Sex: Female

DRUGS (1)
  1. GLEEVEC [Suspect]
     Indication: GASTROINTESTINAL STROMAL TUMOUR
     Dosage: 400 MG/D
     Route: 048
     Dates: start: 20060201

REACTIONS (2)
  - SYNCOPE [None]
  - TRANSIENT ISCHAEMIC ATTACK [None]
